FAERS Safety Report 23598017 (Version 8)
Quarter: 2024Q3

REPORT INFORMATION
  Report Type: Spontaneous
  Country: US (occurrence: US)
  Receive Date: 20240305
  Receipt Date: 20240719
  Transmission Date: 20241016
  Serious: No
  Sender: DAIICHI
  Company Number: US-DAIICHI SANKYO, INC.-DSU-2024-110034AA

PATIENT
  Sex: Female

DRUGS (3)
  1. TURALIO [Suspect]
     Active Substance: PEXIDARTINIB HYDROCHLORIDE
     Indication: Connective tissue neoplasm
     Dosage: UNK
     Route: 065
     Dates: start: 202304
  2. TURALIO [Suspect]
     Active Substance: PEXIDARTINIB HYDROCHLORIDE
     Indication: Soft tissue neoplasm
     Dosage: 250 MG, BID
     Route: 048
     Dates: start: 20231223
  3. TURALIO [Suspect]
     Active Substance: PEXIDARTINIB HYDROCHLORIDE
     Indication: Giant cell tumour of tendon sheath

REACTIONS (17)
  - Depression [Recovered/Resolved]
  - Lacrimation increased [Recovered/Resolved]
  - Appetite disorder [Recovered/Resolved]
  - Weight fluctuation [Recovered/Resolved]
  - Rotator cuff syndrome [Recovered/Resolved]
  - Muscle rupture [Recovered/Resolved]
  - Rotator cuff syndrome [Recovered/Resolved]
  - Dehydration [Recovered/Resolved]
  - Tendon disorder [Recovered/Resolved]
  - Rotator cuff syndrome [Unknown]
  - Tendon injury [Unknown]
  - Dehydration [Unknown]
  - Malaise [Unknown]
  - Dry eye [Unknown]
  - Therapy interrupted [Recovered/Resolved]
  - Weight fluctuation [Unknown]
  - Product dose omission issue [Recovered/Resolved]

NARRATIVE: CASE EVENT DATE: 20230101
